FAERS Safety Report 6273683-1 (Version None)
Quarter: 2009Q3

REPORT INFORMATION
  Report Type: 
  Country: None (occurrence: None)
  Receive Date: 20090715
  Receipt Date: 20090630
  Transmission Date: 20100115
  Serious: Yes (Disabling)
  Sender: FDA-Public Use
  Company Number: 2009AL004459

PATIENT
  Age: 77 Year
  Sex: Male
  Weight: 90 kg

DRUGS (4)
  1. TRAMADOL HYDROCHLORIDE [Suspect]
     Indication: ARTHRALGIA
     Dosage: 300 MG, PO
     Route: 048
     Dates: start: 20070305, end: 20070311
  2. OMEPRAZOLE [Concomitant]
  3. DICLOFENAC [Concomitant]
  4. PREDNISOLONE [Concomitant]

REACTIONS (2)
  - LOSS OF CONTROL OF LEGS [None]
  - MUSCULAR WEAKNESS [None]
